FAERS Safety Report 16186241 (Version 1)
Quarter: 2019Q2

REPORT INFORMATION
  Report Type: Spontaneous
  Country: SI (occurrence: SI)
  Receive Date: 20190411
  Receipt Date: 20190411
  Transmission Date: 20190711
  Serious: Yes (Other)
  Sender: FDA-Public Use
  Company Number: SI-SA-2018SA170428

PATIENT
  Age: 82 Year
  Sex: Female

DRUGS (21)
  1. PANTOPRAZOLE [Suspect]
     Active Substance: PANTOPRAZOLE
     Indication: HELICOBACTER INFECTION
     Dosage: 40 MG, QD, TABLET
     Route: 065
  2. AMOXICILLIN TRIHYDRATE [Suspect]
     Active Substance: AMOXICILLIN
     Indication: HELICOBACTER INFECTION
     Dosage: 1000 MG, BID
     Route: 065
  3. ZOLPIDEM TARTRATE. [Suspect]
     Active Substance: ZOLPIDEM TARTRATE
     Dosage: 5 MG, PRN
     Route: 065
  4. METHYLDIGOXIN [Suspect]
     Active Substance: METILDIGOXIN
     Dosage: 5 DF, QW
     Route: 065
  5. MIANSERINE [Suspect]
     Active Substance: MIANSERIN HYDROCHLORIDE
     Indication: DEPRESSION
     Dosage: 0.5 DF, QD, TABLET
     Route: 065
  6. METFORMIN HYDROCHLORIDE. [Suspect]
     Active Substance: METFORMIN HYDROCHLORIDE
     Indication: TYPE 2 DIABETES MELLITUS
     Dosage: 500 MG, BID
     Route: 065
  7. AMOXICILLIN TRIHYDRATE [Suspect]
     Active Substance: AMOXICILLIN
     Dosage: 1 DF
  8. BISOPROLOL FUMARATE. [Suspect]
     Active Substance: BISOPROLOL FUMARATE
     Indication: HYPERTENSION
     Dosage: 5 MG, BID
     Route: 065
  9. CLARITHROMYCIN. [Interacting]
     Active Substance: CLARITHROMYCIN
     Indication: HELICOBACTER INFECTION
     Dosage: 500 MG, BID
     Route: 065
  10. BISOPROLOL FUMARATE. [Suspect]
     Active Substance: BISOPROLOL FUMARATE
     Dosage: 1 DF, Q12H
     Route: 062
  11. RANOLAZINE. [Interacting]
     Active Substance: RANOLAZINE
     Dosage: 500 MG, BID
     Route: 065
  12. FUROSEMIDE. [Suspect]
     Active Substance: FUROSEMIDE
     Indication: HYPERTENSION
     Dosage: 40 MG, QD
     Route: 065
  13. METFORMIN HYDROCHLORIDE. [Suspect]
     Active Substance: METFORMIN HYDROCHLORIDE
     Dosage: 1 DF, Q12H
  14. ROSUVASTATIN. [Suspect]
     Active Substance: ROSUVASTATIN
     Indication: HYPERTENSION
     Dosage: 1 DF, QD
     Route: 065
  15. BROMAZEPAM [Suspect]
     Active Substance: BROMAZEPAM
     Dosage: 1.5 MG, PRN
     Route: 065
  16. SPIRONOLACTONE. [Suspect]
     Active Substance: SPIRONOLACTONE
     Indication: HYPERTENSION
     Dosage: 25 MG, QD
     Route: 065
  17. GLYCERYL TRINITRATE [Suspect]
     Active Substance: NITROGLYCERIN
     Indication: HYPERTENSION
     Dosage: 0.6 MG, QH
     Route: 062
  18. PERINDOPRIL [Suspect]
     Active Substance: PERINDOPRIL
     Indication: HYPERTENSION
     Dosage: 8 MG, QD
     Route: 065
  19. METHYLDIGOXIN [Suspect]
     Active Substance: METILDIGOXIN
     Indication: CARDIAC FAILURE
     Dosage: 0.1 MG, QW
     Route: 065
  20. FUROSEMIDE. [Suspect]
     Active Substance: FUROSEMIDE
     Dosage: 1 DF, QD
     Route: 065
  21. WARFARIN SODIUM. [Suspect]
     Active Substance: WARFARIN SODIUM
     Dosage: UNK UNK, UNK
     Route: 065

REACTIONS (6)
  - Dizziness [Unknown]
  - Hypotension [Unknown]
  - Syncope [Unknown]
  - Drug level increased [Unknown]
  - Drug interaction [Unknown]
  - Vertigo [Unknown]
